FAERS Safety Report 6592950-5 (Version None)
Quarter: 2010Q1

REPORT INFORMATION
  Report Type: 
  Country: None (occurrence: None)
  Receive Date: 20100222
  Receipt Date: 20100211
  Transmission Date: 20100710
  Serious: Yes (Disabling)
  Sender: FDA-Public Use
  Company Number: US-ELI_LILLY_AND_COMPANY-US201002003629

PATIENT
  Sex: Female

DRUGS (3)
  1. HUMALOG MIX 75/25 [Suspect]
     Indication: DIABETES MELLITUS
     Dosage: 10 U, EACH MORNING
  2. HUMALOG MIX 75/25 [Suspect]
     Dosage: 6 U, EACH EVENING
  3. ANTIHYPERTENSIVES [Concomitant]

REACTIONS (1)
  - BLINDNESS [None]
